FAERS Safety Report 7439692-1 (Version None)
Quarter: 2011Q2

REPORT INFORMATION
  Report Type: 
  Country: None (occurrence: None)
  Receive Date: 20110427
  Receipt Date: 20110414
  Transmission Date: 20111010
  Serious: Yes (Hospitalization, Disabling)
  Sender: FDA-Public Use
  Company Number: PHHY2009DE42902

PATIENT
  Sex: Male
  Weight: 116 kg

DRUGS (11)
  1. SIMVASTATIN [Concomitant]
     Indication: HYPERTENSION
     Dosage: 40 MG, QD
     Route: 048
     Dates: start: 20051007
  2. BISOPROLOL [Concomitant]
     Indication: HYPERTENSION
     Dosage: 15MG/DAY
     Route: 048
     Dates: start: 20051007
  3. ALLOPURINOL [Concomitant]
     Indication: GOUT
     Dosage: 150MG/DAY
     Route: 048
     Dates: start: 20051007
  4. FALITHROM [Concomitant]
     Indication: COAGULOPATHY
     Dosage: UNK
     Route: 048
     Dates: start: 20051007
  5. TORSEMIDE [Concomitant]
     Indication: DIURETIC THERAPY
     Dosage: 20MG/DAY
     Route: 048
     Dates: start: 20051007
  6. ANTITHROMBOTIC AGENTS [Concomitant]
  7. ALISKIREN [Suspect]
     Indication: HYPERTENSION
     Dosage: 300 MG, QD
     Route: 048
     Dates: start: 20080804
  8. DIGIMED [Concomitant]
     Indication: CARDIAC FAILURE
     Dosage: 0.07 MG, QD
     Route: 048
     Dates: start: 20051007
  9. RAMIPRIL [Concomitant]
     Indication: HYPERTENSION
     Dosage: 50 MG, UNK
     Route: 048
     Dates: start: 20101007
  10. MOXONIDINE [Concomitant]
     Indication: HYPERTENSION
     Dosage: 0.6MG/DAY
     Route: 048
     Dates: start: 20080613
  11. INSULIN RAPID [Concomitant]
     Indication: DIABETES MELLITUS
     Dosage: 100 IE/ML
     Dates: start: 20051007

REACTIONS (2)
  - BLINDNESS UNILATERAL [None]
  - OCULAR VASCULAR DISORDER [None]
